FAERS Safety Report 5306123-7 (Version None)
Quarter: 2007Q2

REPORT INFORMATION
  Report Type: 
  Country: None (occurrence: None)
  Receive Date: 20070424
  Receipt Date: 20070420
  Transmission Date: 20071010
  Serious: Yes (Other)
  Sender: FDA-Public Use
  Company Number: JP-BRISTOL-MYERS SQUIBB COMPANY-13755863

PATIENT
  Age: 38 Year
  Sex: Male

DRUGS (1)
  1. ENTECAVIR [Suspect]
     Indication: HEPATITIS B
     Dosage: AT 24 WEEKS OF ENTECAVIR, THE DOSE WAS INCREASED TO 0.5 MG/ DAILY
     Route: 048

REACTIONS (1)
  - DRUG RESISTANCE [None]
